FAERS Safety Report 6135971-9 (Version None)
Quarter: 2009Q1

REPORT INFORMATION
  Report Type: 
  Country: None (occurrence: None)
  Receive Date: 20090329
  Receipt Date: 20080718
  Transmission Date: 20090719
  Serious: No
  Sender: FDA-Public Use
  Company Number: US-BAUSCH-2008BL003175

PATIENT
  Age: 62 Year
  Sex: Female

DRUGS (2)
  1. LOTEMAX [Suspect]
     Indication: POSTOPERATIVE CARE
     Route: 047
     Dates: start: 20080704, end: 20080710
  2. MOTRIN [Concomitant]
     Indication: ARTHRITIS
     Route: 048

REACTIONS (4)
  - EYE PRURITUS [None]
  - EYELID OEDEMA [None]
  - HYPERSENSITIVITY [None]
  - VISION BLURRED [None]
